FAERS Safety Report 19089540 (Version 8)
Quarter: 2021Q3

REPORT INFORMATION
  Report Type: Report from Study
  Country: US (occurrence: US)
  Receive Date: 20210403
  Receipt Date: 20210709
  Transmission Date: 20211014
  Serious: No
  Sender: FDA-Public Use
  Company Number: NVSC2021US073615

PATIENT
  Sex: Female

DRUGS (5)
  1. COSENTYX [Suspect]
     Active Substance: SECUKINUMAB
     Indication: PSORIASIS
     Dosage: 300 MG, QW (QW FOR 5 WEEKS AND THEN QMO (ONCE EVERY 4 WEEKS)) (BENEATH THE SKIN, USUALLY VIA INJECTI
     Route: 058
  2. COSENTYX [Suspect]
     Active Substance: SECUKINUMAB
     Dosage: 150 MG, Q2W
     Route: 065
  3. COSENTYX [Suspect]
     Active Substance: SECUKINUMAB
     Dosage: 300 MG, QW (QW FOR 5 WEEKS AND THEN QMO (ONCE EVERY 4 WEEKS)) (BENEATH THE SKIN, USUALLY VIA INJECTI
     Route: 058
  4. COSENTYX [Suspect]
     Active Substance: SECUKINUMAB
     Dosage: 300 MG, QW (QW FOR 5 WEEKS AND THEN QMO (ONCE EVERY 4 WEEKS)) (BENEATH THE SKIN, USUALLY VIA INJECTI
     Route: 058
  5. OTEZLA [Suspect]
     Active Substance: APREMILAST
     Indication: PRODUCT USED FOR UNKNOWN INDICATION
     Dosage: UNK
     Route: 065

REACTIONS (8)
  - Fatigue [Recovered/Resolved]
  - Vomiting [Unknown]
  - Pain [Unknown]
  - Skin haemorrhage [Unknown]
  - Rash [Unknown]
  - Illness [Unknown]
  - Skin fissures [Unknown]
  - Psoriasis [Unknown]
